FAERS Safety Report 7326100-4 (Version None)
Quarter: 2011Q1

REPORT INFORMATION
  Report Type: 
  Country: None (occurrence: None)
  Receive Date: 20110302
  Receipt Date: 20110222
  Transmission Date: 20110831
  Serious: Yes (Other)
  Sender: FDA-Public Use
  Company Number: JP-ROCHE-756616

PATIENT
  Age: 8 Year
  Sex: Male
  Weight: 24.3 kg

DRUGS (6)
  1. TAMIFLU [Suspect]
     Indication: INFLUENZA
     Dosage: NOTE: DOSAGE IS UNCERTAIN,
     Route: 048
     Dates: start: 20110125, end: 20110126
  2. ALLEGRA [Concomitant]
     Route: 048
  3. ASVERIN [Concomitant]
     Route: 048
     Dates: start: 20110125, end: 20110130
  4. MUCODYNE [Concomitant]
     Route: 048
     Dates: start: 20110125, end: 20110130
  5. SINGULAIR [Concomitant]
     Dosage: FORM: CHEW LOCK
     Route: 048
     Dates: start: 20110125, end: 20110130
  6. HOKUNALIN [Concomitant]
     Route: 048
     Dates: start: 20110125, end: 20110130

REACTIONS (1)
  - ABNORMAL BEHAVIOUR [None]
